FAERS Safety Report 26011944 (Version 1)
Quarter: 2025Q4

REPORT INFORMATION
  Report Type: Spontaneous
  Country: US (occurrence: US)
  Receive Date: 20251107
  Receipt Date: 20251107
  Transmission Date: 20260119
  Serious: No
  Sender: NOVARTIS
  Company Number: US-002147023-NVSC2025US168662

PATIENT
  Sex: Female

DRUGS (1)
  1. LEQVIO [Suspect]
     Active Substance: INCLISIRAN SODIUM
     Indication: Hypercholesterolaemia
     Dosage: 284 MG (DOSE AT DAY, ONE, DAY, 90 AND EVERY SIX MONTHS AFTER)
     Route: 058

REACTIONS (1)
  - Rash [Recovering/Resolving]
